FAERS Safety Report 25503660 (Version 1)
Quarter: 2025Q3

REPORT INFORMATION
  Report Type: Spontaneous
  Country: GB (occurrence: GB)
  Receive Date: 20250702
  Receipt Date: 20250702
  Transmission Date: 20251021
  Serious: Yes (Disabling, Other)
  Sender: ROVIPHARM SAS
  Company Number: GB-JNJFOC-20250424209

PATIENT

DRUGS (1)
  1. RISPERIDONE [Suspect]
     Active Substance: RISPERIDONE
     Indication: Product used for unknown indication

REACTIONS (2)
  - Cognitive disorder [Unknown]
  - Quality of life decreased [Unknown]
